FAERS Safety Report 4417940-X (Version None)
Quarter: 2004Q2

REPORT INFORMATION
  Report Type: 
  Country: None (occurrence: None)
  Receive Date: 20040622
  Receipt Date: 20040303
  Transmission Date: 20050107
  Serious: Yes (Hospitalization)
  Sender: FDA-Public Use
  Company Number: 360699

PATIENT
  Age: 83 Year
  Sex: Female

DRUGS (4)
  1. XELODA [Suspect]
     Indication: COLON CANCER
     Dosage: 2000 MG 2 PER DAY ORAL
     Route: 048
     Dates: start: 20031215
  2. IRON (IRON NOS) [Concomitant]
  3. BEROCCA (ASCORBIC ACID/ CALCIUM PANTOTHENATE/ CYANOCOBALAMIN/ FOLIC AC [Concomitant]
  4. FOLIC ACID [Concomitant]

REACTIONS (3)
  - DEHYDRATION [None]
  - DIARRHOEA [None]
  - SYNCOPE [None]
